FAERS Safety Report 20706921 (Version 1)
Quarter: 2022Q2

REPORT INFORMATION
  Report Type: Spontaneous
  Country: US (occurrence: US)
  Receive Date: 20220413
  Receipt Date: 20220413
  Transmission Date: 20220721
  Serious: No
  Sender: FDA-Public Use
  Company Number: US-PFIZER INC-202101006800

PATIENT
  Sex: Female

DRUGS (1)
  1. CHANTIX [Suspect]
     Active Substance: VARENICLINE TARTRATE

REACTIONS (6)
  - Recalled product administered [Unknown]
  - Headache [Unknown]
  - Disturbance in attention [Unknown]
  - Memory impairment [Unknown]
  - Restlessness [Unknown]
  - Poor quality sleep [Unknown]
